FAERS Safety Report 6012632-8 (Version None)
Quarter: 2008Q4

REPORT INFORMATION
  Report Type: 
  Country: None (occurrence: None)
  Receive Date: 20081217
  Receipt Date: 20081202
  Transmission Date: 20090506
  Serious: Yes (Other)
  Sender: FDA-Public Use
  Company Number: 2008S1021456

PATIENT
  Age: 41 Year
  Sex: Male
  Weight: 84 kg

DRUGS (5)
  1. CITALOPRAM HYDROBROMIDE [Suspect]
     Indication: ANXIETY
     Dosage: DAILY; ORAL
     Route: 048
     Dates: start: 20081111, end: 20081124
  2. BUSPIRONE HCL [Suspect]
     Indication: ANXIETY
     Dosage: 1 DF; 3 TIMES A DAY; ORAL
     Route: 048
     Dates: start: 20081118, end: 20081124
  3. ACETAMINOPHEN W/ CODEINE [Concomitant]
  4. DIAZEPAM [Concomitant]
  5. OMEPRAZOLE [Concomitant]

REACTIONS (2)
  - ANXIETY [None]
  - CONDITION AGGRAVATED [None]
